FAERS Safety Report 13136805 (Version 1)
Quarter: 2017Q1

REPORT INFORMATION
  Report Type: Spontaneous
  Country: US (occurrence: US)
  Receive Date: 20170123
  Receipt Date: 20170123
  Transmission Date: 20170428
  Serious: No
  Sender: FDA-Public Use
  Company Number: US-GLAXOSMITHKLINE-US2017006817

PATIENT
  Age: 57 Year
  Sex: Male

DRUGS (1)
  1. FLONASE [Suspect]
     Active Substance: FLUTICASONE PROPIONATE
     Indication: HYPERSENSITIVITY
     Dosage: UNK UNK, QD, HALF SPRAY IN EACH NOSTRIL ONCE A DAY
     Dates: start: 20161020, end: 201610

REACTIONS (2)
  - Underdose [Unknown]
  - Anosmia [Not Recovered/Not Resolved]
